FAERS Safety Report 16941225 (Version 1)
Quarter: 2019Q4

REPORT INFORMATION
  Report Type: Spontaneous
  Country: IT (occurrence: IT)
  Receive Date: 20191021
  Receipt Date: 20191021
  Transmission Date: 20200122
  Serious: Yes (Other)
  Sender: FDA-Public Use
  Company Number: IT-SA-2017SA250587

PATIENT
  Age: 78 Year
  Sex: Male
  Weight: 80 kg

DRUGS (30)
  1. ROSUVASTATIN. [Suspect]
     Active Substance: ROSUVASTATIN
     Dosage: 20 MG,QD
     Route: 065
  2. LEVOTHYROXINE SODIUM. [Suspect]
     Active Substance: LEVOTHYROXINE SODIUM
     Indication: PRODUCT USED FOR UNKNOWN INDICATION
     Dosage: 25 MG,UNK
     Route: 065
  3. CARVEDILOL. [Suspect]
     Active Substance: CARVEDILOL
     Indication: PRODUCT USED FOR UNKNOWN INDICATION
     Dosage: 6 MG,QD
     Route: 065
  4. VALSARTAN. [Suspect]
     Active Substance: VALSARTAN
     Indication: PRODUCT USED FOR UNKNOWN INDICATION
     Dosage: 320 MG,QD
     Route: 065
  5. CARVEDILOL. [Suspect]
     Active Substance: CARVEDILOL
     Dosage: 12.5 MG, BID
  6. FUROSEMIDE. [Suspect]
     Active Substance: FUROSEMIDE
     Indication: PRODUCT USED FOR UNKNOWN INDICATION
     Dosage: 20 MG, QD
  7. LEVOTHYROXINE SODIUM. [Suspect]
     Active Substance: LEVOTHYROXINE SODIUM
     Dosage: 50 MG,UNK
     Route: 065
  8. SPIRONOLACTONE. [Suspect]
     Active Substance: SPIRONOLACTONE
     Dosage: 12.5 MG
     Route: 065
  9. ROSUVASTATIN. [Suspect]
     Active Substance: ROSUVASTATIN
     Dosage: 10 MG,QD
  10. CARVEDILOL. [Suspect]
     Active Substance: CARVEDILOL
     Dosage: 50 MG,QD
     Route: 048
  11. CARVEDILOL. [Suspect]
     Active Substance: CARVEDILOL
     Dosage: 37.5 MG, QD (25 MG AT THE MORNING AND 12.5 MG AT THE EVENING)
     Route: 065
  12. SPIRONOLACTONE. [Suspect]
     Active Substance: SPIRONOLACTONE
     Indication: PRODUCT USED FOR UNKNOWN INDICATION
     Dosage: 13 MG, UNK
     Route: 065
  13. ROSUVASTATIN. [Suspect]
     Active Substance: ROSUVASTATIN
     Indication: PRODUCT USED FOR UNKNOWN INDICATION
     Dosage: 40 MG,QD
     Route: 065
  14. FUROSEMIDE. [Suspect]
     Active Substance: FUROSEMIDE
     Dosage: 40 MG, QD
  15. CARVEDILOL. [Suspect]
     Active Substance: CARVEDILOL
     Dosage: 19 MG,QD
     Route: 048
  16. FUROSEMIDE SODIUM [Suspect]
     Active Substance: FUROSEMIDE SODIUM
     Indication: PRODUCT USED FOR UNKNOWN INDICATION
     Dosage: 40 MG,QD
     Route: 065
  17. CARVEDILOL. [Suspect]
     Active Substance: CARVEDILOL
     Dosage: 25 MG, BID
  18. RIVAROXABAN [Suspect]
     Active Substance: RIVAROXABAN
     Dosage: 20 MG,QD
     Route: 065
  19. CARVEDILOL. [Suspect]
     Active Substance: CARVEDILOL
     Dosage: 25 MG,QD
     Route: 048
  20. CARVEDILOL. [Suspect]
     Active Substance: CARVEDILOL
     Dosage: 12.5 MG, QD
  21. CARVEDILOL. [Suspect]
     Active Substance: CARVEDILOL
     Dosage: 18.75 MG, QD
  22. IRBESARTAN. [Suspect]
     Active Substance: IRBESARTAN
     Indication: PRODUCT USED FOR UNKNOWN INDICATION
     Dosage: 150 MG,QD
     Route: 065
  23. RIVAROXABAN [Suspect]
     Active Substance: RIVAROXABAN
     Indication: PRODUCT USED FOR UNKNOWN INDICATION
     Dosage: 15 MG,QD
     Route: 065
  24. CARVEDILOL. [Suspect]
     Active Substance: CARVEDILOL
     Dosage: 38 MG,QD
     Route: 065
  25. FUROSEMIDE SODIUM [Suspect]
     Active Substance: FUROSEMIDE SODIUM
     Dosage: 20 MG,QD
     Route: 065
  26. TIOTROPIUM BROMIDE [Suspect]
     Active Substance: TIOTROPIUM BROMIDE
     Indication: PRODUCT USED FOR UNKNOWN INDICATION
     Dosage: 1 DF,QD
     Route: 065
  27. LEVOTHYROXINE SODIUM. [Suspect]
     Active Substance: LEVOTHYROXINE SODIUM
     Dosage: 100 UG,UNK
     Route: 065
  28. CARVEDILOL. [Suspect]
     Active Substance: CARVEDILOL
     Dosage: 13 MG,QD
     Route: 048
  29. CARVEDILOL. [Suspect]
     Active Substance: CARVEDILOL
     Dosage: 6.25 MG, QD
  30. CARVEDILOL. [Suspect]
     Active Substance: CARVEDILOL
     Dosage: 18.75 MG, QD (12.5MG AT THE MORNING AND 6.25 AT THE EVENING)
     Route: 065

REACTIONS (31)
  - Fractured coccyx [Unknown]
  - Obstructive airways disorder [Unknown]
  - Conduction disorder [Unknown]
  - Cardiomegaly [Unknown]
  - Ventricular hypokinesia [Unknown]
  - Bundle branch block right [Unknown]
  - N-terminal prohormone brain natriuretic peptide abnormal [Unknown]
  - Brain natriuretic peptide abnormal [Unknown]
  - Blood pressure increased [Unknown]
  - Tricuspid valve incompetence [Unknown]
  - Dyslipidaemia [Unknown]
  - Chronic obstructive pulmonary disease [Unknown]
  - Pulmonary arterial pressure abnormal [Unknown]
  - Atrial fibrillation [Unknown]
  - C-reactive protein abnormal [Unknown]
  - Electrocardiogram QRS complex abnormal [Unknown]
  - Ejection fraction decreased [Unknown]
  - Dyspnoea [Unknown]
  - Goitre [Unknown]
  - Hypertension [Unknown]
  - Thyroiditis [Unknown]
  - Type 2 diabetes mellitus [Unknown]
  - Blood thyroid stimulating hormone abnormal [Unknown]
  - Mitral valve incompetence [Unknown]
  - Aortic aneurysm [Unknown]
  - Left ventricular dilatation [Unknown]
  - Fall [Unknown]
  - Oxygen saturation increased [Unknown]
  - Cardiac failure chronic [Recovering/Resolving]
  - Bundle branch block left [Unknown]
  - Oedema peripheral [Unknown]

NARRATIVE: CASE EVENT DATE: 20150722
